FAERS Safety Report 9675709 (Version 2)
Quarter: 2013Q4

REPORT INFORMATION
  Report Type: Report from Study
  Country: US (occurrence: US)
  Receive Date: 20131107
  Receipt Date: 20131107
  Transmission Date: 20140711
  Serious: Yes (Death, Hospitalization)
  Sender: FDA-Public Use
  Company Number: US-ROCHE-1180677

PATIENT
  Age: 63 Year
  Sex: Female
  Weight: 64.4 kg

DRUGS (4)
  1. CAPECITABINE [Suspect]
     Indication: BREAST CANCER METASTATIC
     Dosage: DAY 1 TO 14
     Route: 048
     Dates: start: 20121017, end: 20121225
  2. RAMUCIRUMAB [Suspect]
     Indication: BREAST CANCER METASTATIC
     Dosage: DAY 1
     Route: 042
     Dates: start: 20121017, end: 20121220
  3. CARVEDILOL [Concomitant]
     Route: 065
     Dates: start: 20111206
  4. TRIAMTERENE/HYDROCHLOROTHIAZIDE [Concomitant]

REACTIONS (2)
  - Respiratory failure [Fatal]
  - Hyponatraemia [Recovered/Resolved]
